FAERS Safety Report 11804825 (Version 1)
Quarter: 2015Q4

REPORT INFORMATION
  Report Type: Spontaneous
  Country: US (occurrence: US)
  Receive Date: 20151205
  Receipt Date: 20151205
  Transmission Date: 20160305
  Serious: No
  Sender: FDA-Public Use
  Company Number: US-ASTRAZENECA-2015SF12898

PATIENT
  Sex: Female

DRUGS (1)
  1. CRESTOR [Suspect]
     Active Substance: ROSUVASTATIN CALCIUM
     Route: 048

REACTIONS (8)
  - Musculoskeletal stiffness [Unknown]
  - Arthritis [Unknown]
  - Arthralgia [Unknown]
  - Insomnia [Unknown]
  - Pain in extremity [Unknown]
  - Alopecia [Unknown]
  - Flatulence [Unknown]
  - Muscle disorder [Unknown]
